FAERS Safety Report 4612099-8 (Version None)
Quarter: 2005Q2

REPORT INFORMATION
  Report Type: 
  Country: None (occurrence: None)
  Receive Date: 20050308
  Receipt Date: 20041222
  Transmission Date: 20051028
  Serious: Yes (Other)
  Sender: FDA-Public Use
  Company Number: 2004UW26034

PATIENT
  Age: 64 Year
  Sex: Female
  Weight: 70.76 kg

DRUGS (19)
  1. CRESTOR [Suspect]
     Indication: HYPERCHOLESTEROLAEMIA
     Dosage: 10 MG ONCE PO
     Route: 048
     Dates: start: 20041221
  2. ESTRADERM [Concomitant]
  3. ATIVAN [Concomitant]
  4. ZOLOFT [Concomitant]
  5. HUMIRA [Concomitant]
  6. AMBIEN [Concomitant]
  7. DIOVAN HCT [Concomitant]
  8. VASOTEC [Concomitant]
  9. ADVAIR DISKUS 100/50 [Concomitant]
  10. NASONEX [Concomitant]
  11. VITAMIN D [Concomitant]
  12. FOLIC ACID [Concomitant]
  13. ASPIRIN [Concomitant]
  14. VITAMIN E [Concomitant]
  15. ESTER-C [Concomitant]
  16. M.V.I. [Concomitant]
  17. VIACTIV [Concomitant]
  18. METHOTREXATE [Concomitant]
  19. ADVIL [Concomitant]

REACTIONS (5)
  - ANXIETY [None]
  - INSOMNIA [None]
  - JOINT LOCK [None]
  - MUSCLE SPASMS [None]
  - PAIN IN EXTREMITY [None]
